FAERS Safety Report 6840630-0 (Version None)
Quarter: 2010Q3

REPORT INFORMATION
  Report Type: 
  Country: None (occurrence: None)
  Receive Date: 20100714
  Receipt Date: 20100701
  Transmission Date: 20110219
  Serious: Yes (Hospitalization)
  Sender: FDA-Public Use
  Company Number: HU-ELI_LILLY_AND_COMPANY-HU201006003124

PATIENT
  Age: 49 Year
  Sex: Male

DRUGS (2)
  1. ZYPADHERA [Suspect]
     Indication: SCHIZOPHRENIA
     Dosage: 405 MG, MONTHLY (1/M)
     Route: 030
     Dates: start: 20100101
  2. XANAX [Concomitant]
     Dosage: 0.5 MG, DAILY (1/D)
     Route: 048

REACTIONS (5)
  - DYSKINESIA [None]
  - GAIT DISTURBANCE [None]
  - HALLUCINATION [None]
  - SOMNOLENCE [None]
  - TACHYCARDIA [None]
